FAERS Safety Report 5513613-0 (Version None)
Quarter: 2007Q4

REPORT INFORMATION
  Report Type: 
  Country: None (occurrence: None)
  Receive Date: 20071112
  Receipt Date: 20071108
  Transmission Date: 20080405
  Serious: Yes (Life-Threatening, Hospitalization, Disabling)
  Sender: FDA-Public Use
  Company Number: FI-BOEHRINGER INGELHEIM PHARMACEUTICALS, INC.-2007-SW-00415SF

PATIENT
  Age: 76 Year
  Sex: Male

DRUGS (4)
  1. MICARDIS TAB 80 MG [Suspect]
     Indication: HYPERTENSION
     Dates: end: 20071001
  2. MICARDIS TAB 80 MG [Suspect]
     Dates: start: 20071001, end: 20071015
  3. ZANIDIP [Suspect]
     Indication: HYPERTENSION
  4. LINATIL COMP [Suspect]
     Indication: HYPERTENSION

REACTIONS (7)
  - BRAIN DAMAGE [None]
  - CONFUSIONAL STATE [None]
  - DYSPNOEA [None]
  - FACE OEDEMA [None]
  - LOSS OF CONSCIOUSNESS [None]
  - OVERDOSE [None]
  - PHARYNGEAL OEDEMA [None]
